FAERS Safety Report 7523041-4 (Version None)
Quarter: 2011Q2

REPORT INFORMATION
  Report Type: 
  Country: None (occurrence: None)
  Receive Date: 20110525
  Receipt Date: 20110517
  Transmission Date: 20111010
  Serious: Yes (Life-Threatening, Other)
  Sender: FDA-Public Use
  Company Number: 2011SP023125

PATIENT
  Age: 35 Year
  Sex: Female

DRUGS (4)
  1. CELEXA [Concomitant]
  2. SAPHRIS [Suspect]
     Indication: PRODUCT USED FOR UNKNOWN INDICATION
     Dosage: 10 MG;HS;SL
     Route: 060
  3. WELLBUTRIN [Concomitant]
  4. TRAZODONE HCL [Concomitant]

REACTIONS (4)
  - DYSTONIA [None]
  - SWOLLEN TONGUE [None]
  - DYSPHAGIA [None]
  - PHARYNGEAL OEDEMA [None]
